FAERS Safety Report 14799427 (Version 1)
Quarter: 2018Q2

REPORT INFORMATION
  Report Type: Spontaneous
  Country: US (occurrence: US)
  Receive Date: 20180424
  Receipt Date: 20180424
  Transmission Date: 20180711
  Serious: Yes (Hospitalization, Other)
  Sender: FDA-Public Use
  Company Number: US-APOTEX-2018AP011538

PATIENT
  Age: 25 Year
  Sex: Female

DRUGS (3)
  1. REDOTEX [Suspect]
     Active Substance: ALOIN\ATROPINE SULFATE\CATHINE\DIAZEPAM\LIOTHYRONINE
     Indication: PRODUCT USED FOR UNKNOWN INDICATION
     Dosage: 20 DF, UNK
     Route: 048
  2. IBUPROFEN. [Suspect]
     Active Substance: IBUPROFEN
     Indication: PRODUCT USED FOR UNKNOWN INDICATION
     Dosage: 2 DF, UNK
     Route: 048
  3. SUMATRIPTAN. [Suspect]
     Active Substance: SUMATRIPTAN
     Indication: PRODUCT USED FOR UNKNOWN INDICATION
     Dosage: 500 MG, UNK
     Route: 048

REACTIONS (10)
  - Tachycardia [Recovered/Resolved]
  - Headache [Recovered/Resolved]
  - Dizziness [Recovered/Resolved]
  - Toxicity to various agents [Recovered/Resolved]
  - Tri-iodothyronine increased [Recovered/Resolved]
  - Agitation [Recovered/Resolved]
  - Chest pain [Recovered/Resolved]
  - Suicide attempt [Unknown]
  - Nausea [Recovered/Resolved]
  - Hypertension [Recovered/Resolved]
